FAERS Safety Report 7359661-X (Version None)
Quarter: 2011Q1

REPORT INFORMATION
  Report Type: 
  Country: None (occurrence: None)
  Receive Date: 20110317
  Receipt Date: 20100429
  Transmission Date: 20110831
  Serious: No
  Sender: FDA-Public Use
  Company Number: US-PFIZER INC-2010025648

PATIENT
  Sex: Female

DRUGS (4)
  1. AMLODIPINE BESYLATE [Suspect]
     Indication: BLOOD PRESSURE ABNORMAL
     Dosage: 5 MG, 2X/DAY
     Route: 048
     Dates: start: 20100215
  2. ACIPHEX [Concomitant]
     Dosage: 20 MG, UNK
  3. ZETIA [Concomitant]
     Dosage: 10 MG, UNK
  4. WARFARIN SODIUM [Concomitant]
     Dosage: 2 MG, UNK

REACTIONS (1)
  - PARAESTHESIA ORAL [None]
